FAERS Safety Report 6025161-2 (Version None)
Quarter: 2008Q4

REPORT INFORMATION
  Report Type: 
  Country: None (occurrence: None)
  Receive Date: 20081231
  Receipt Date: 20081202
  Transmission Date: 20090506
  Serious: Yes (Other)
  Sender: FDA-Public Use
  Company Number: BR-PFIZER INC-2007101832

PATIENT

DRUGS (7)
  1. CHAMPIX [Suspect]
     Indication: SMOKING CESSATION THERAPY
     Route: 048
     Dates: start: 20071119
  2. ALL OTHER THERAPEUTIC PRODUCTS [Suspect]
     Indication: ASTHMA
  3. RIVOTRIL [Concomitant]
     Route: 048
     Dates: start: 20020101
  4. FORASEQ [Concomitant]
     Dates: start: 20050101
  5. COMBIVENT [Concomitant]
     Dates: start: 20030101
  6. DRUG, UNSPECIFIED [Concomitant]
  7. TRAMAL RETARD (TRAMADOL) [Concomitant]
     Route: 048

REACTIONS (10)
  - AGITATION [None]
  - ANOREXIA [None]
  - ANXIETY [None]
  - BENIGN HEPATIC NEOPLASM [None]
  - CRYING [None]
  - DEPRESSION [None]
  - EMPHYSEMA [None]
  - FEELING OF DESPAIR [None]
  - NIGHTMARE [None]
  - WEIGHT DECREASED [None]
